FAERS Safety Report 9890298 (Version 2)
Quarter: 2014Q2

REPORT INFORMATION
  Report Type: Spontaneous
  Country: IT (occurrence: IT)
  Receive Date: 20140212
  Receipt Date: 20140408
  Transmission Date: 20141212
  Serious: Yes (Other)
  Sender: FDA-Public Use
  Company Number: IT-BRISTOL-MYERS SQUIBB COMPANY-20163986

PATIENT
  Age: 69 Year
  Sex: Female

DRUGS (6)
  1. ORENCIA FOR INJ [Suspect]
     Indication: RHEUMATOID ARTHRITIS
     Dosage: POWDER FOR INJECTION
     Route: 042
     Dates: start: 20030101, end: 20131231
  2. LEFLUNOMIDE [Concomitant]
  3. HYDROCORTISONE ACETATE [Concomitant]
  4. IBANDRONATE [Concomitant]
  5. VOLTFAST [Concomitant]
  6. MODURETIC [Concomitant]
     Dosage: 1 DF= 0.5 UNIT

REACTIONS (1)
  - Cholestasis [Not Recovered/Not Resolved]
